FAERS Safety Report 21871400 (Version 1)
Quarter: 2023Q1

REPORT INFORMATION
  Report Type: Spontaneous
  Country: US (occurrence: None)
  Receive Date: 20230113
  Receipt Date: 20230113
  Transmission Date: 20230417
  Serious: Yes (Hospitalization)
  Sender: FDA-Public Use
  Company Number: None

PATIENT
  Age: 68 Year
  Sex: Female

DRUGS (22)
  1. OPSUMIT [Suspect]
     Active Substance: MACITENTAN
     Indication: Pulmonary arterial hypertension
     Dosage: FREQUENCY : DAILY;?
     Route: 048
     Dates: start: 20160425
  2. OPSUMIT [Suspect]
     Active Substance: MACITENTAN
     Indication: Heritable pulmonary arterial hypertension
  3. AREDS-2 [Concomitant]
  4. PROBIOTICS NOS [Concomitant]
     Active Substance: PROBIOTICS NOS
  5. NORCO [Concomitant]
     Active Substance: ACETAMINOPHEN\HYDROCODONE BITARTRATE
  6. LASIX [Concomitant]
     Active Substance: FUROSEMIDE
  7. K-TAB [Concomitant]
     Active Substance: POTASSIUM CHLORIDE
  8. METOLAZONE [Concomitant]
     Active Substance: METOLAZONE
  9. SILDENAFIL [Concomitant]
     Active Substance: SILDENAFIL
  10. SELEXIPAG [Concomitant]
     Active Substance: SELEXIPAG
  11. PREGABALIN [Concomitant]
     Active Substance: PREGABALIN
  12. PRADAXA [Concomitant]
     Active Substance: DABIGATRAN ETEXILATE MESYLATE
  13. LISINOPRIL [Concomitant]
     Active Substance: LISINOPRIL
  14. OMEPRAZOLE [Concomitant]
     Active Substance: OMEPRAZOLE
  15. ROSUVASTATIN [Concomitant]
     Active Substance: ROSUVASTATIN
  16. ALVESCO HFA [Concomitant]
  17. XOPENEX HFA [Concomitant]
     Active Substance: LEVALBUTEROL TARTRATE
  18. MAGNEXIUM OXIDE [Concomitant]
  19. VITAMINS [Concomitant]
     Active Substance: VITAMINS
  20. FISH OIL [Concomitant]
     Active Substance: FISH OIL
  21. CALCIUM CARBONATE\CHOLECALCIFEROL [Concomitant]
     Active Substance: CALCIUM CARBONATE\CHOLECALCIFEROL
  22. MINERALS\VITAMINS [Concomitant]
     Active Substance: MINERALS\VITAMINS

REACTIONS (2)
  - Acute respiratory failure [None]
  - SARS-CoV-2 test positive [None]

NARRATIVE: CASE EVENT DATE: 20230106
